FAERS Safety Report 8603231-X (Version None)
Quarter: 2012Q3

REPORT INFORMATION
  Report Type: 
  Country: None (occurrence: None)
  Receive Date: 20120817
  Receipt Date: 20120808
  Transmission Date: 20120928
  Serious: Yes (Hospitalization)
  Sender: FDA-Public Use
  Company Number: US-JNJFOC-20120805806

PATIENT
  Sex: Male
  Weight: 45.7 kg

DRUGS (4)
  1. ANTIBIOTICS [Concomitant]
  2. MESALAMINE [Concomitant]
  3. ZANTAC [Concomitant]
  4. REMICADE [Suspect]
     Indication: CROHN'S DISEASE
     Route: 042
     Dates: start: 20060926, end: 20100903

REACTIONS (1)
  - OSTEONECROSIS [None]
